FAERS Safety Report 11253475 (Version 1)
Quarter: 2015Q3

REPORT INFORMATION
  Report Type: Spontaneous
  Country: BR (occurrence: BR)
  Receive Date: 20150709
  Receipt Date: 20150709
  Transmission Date: 20151125
  Serious: Yes (Hospitalization)
  Sender: FDA-Public Use
  Company Number: BR-PFIZER INC-2014295112

PATIENT
  Age: 67 Year
  Sex: Male
  Weight: 61 kg

DRUGS (4)
  1. SUTENT [Suspect]
     Active Substance: SUNITINIB MALATE
     Indication: GASTROINTESTINAL STROMAL TUMOUR
     Dosage: 37.5 MG, UNK (25MG AND 12.5MG)
     Dates: start: 201407
  2. SUTENT [Suspect]
     Active Substance: SUNITINIB MALATE
     Dosage: 50 MG, DAILY (FOR ONE MONTH) AND RESTING FOR 15 DAYS (CYCLIC)
  3. SUTENT [Suspect]
     Active Substance: SUNITINIB MALATE
     Dosage: UNK
  4. SUTENT [Suspect]
     Active Substance: SUNITINIB MALATE
     Dosage: UNK
     Dates: start: 201410, end: 201504

REACTIONS (11)
  - Bone loss [Recovered/Resolved]
  - Weight decreased [Not Recovered/Not Resolved]
  - Pancreas infection [Unknown]
  - Gastrointestinal stromal tumour [Unknown]
  - Gastrointestinal necrosis [Unknown]
  - Disease progression [Unknown]
  - Tooth demineralisation [Recovered/Resolved]
  - Device failure [Recovered/Resolved]
  - Thirst [Not Recovered/Not Resolved]
  - Decreased appetite [Not Recovered/Not Resolved]
  - Depression [Not Recovered/Not Resolved]

NARRATIVE: CASE EVENT DATE: 201409
